FAERS Safety Report 20920214 (Version 1)
Quarter: 2022Q2

REPORT INFORMATION
  Report Type: Spontaneous
  Country: RU (occurrence: None)
  Receive Date: 20220604
  Receipt Date: 20220604
  Transmission Date: 20220721
  Serious: Yes (Disabling)
  Sender: FDA-Public Use
  Company Number: None

PATIENT
  Age: 17 Year
  Sex: Male
  Weight: 70 kg

DRUGS (1)
  1. MINOXIDIL [Suspect]
     Active Substance: MINOXIDIL
     Indication: Hair growth abnormal
     Dosage: FREQUENCY : TWICE A DAY;?
     Route: 061
     Dates: start: 20200110, end: 20210103

REACTIONS (14)
  - Palpitations [None]
  - Arrhythmia [None]
  - Mental disorder [None]
  - Apathy [None]
  - Decreased activity [None]
  - Anxiety [None]
  - Panic attack [None]
  - Sleep disorder [None]
  - Depression [None]
  - Libido disorder [None]
  - Libido decreased [None]
  - Erectile dysfunction [None]
  - Erectile dysfunction [None]
  - Quality of life decreased [None]

NARRATIVE: CASE EVENT DATE: 20200110
